FAERS Safety Report 7876750-1 (Version None)
Quarter: 2011Q4

REPORT INFORMATION
  Report Type: 
  Country: None (occurrence: None)
  Receive Date: 20111031
  Receipt Date: 20111026
  Transmission Date: 20120403
  Serious: Yes (Hospitalization)
  Sender: FDA-Public Use
  Company Number: US-SANOFI-AVENTIS-2011SA070812

PATIENT
  Age: 52 Year
  Sex: Female
  Weight: 86.36 kg

DRUGS (7)
  1. SIMVASTATIN [Concomitant]
  2. SEROQUEL [Interacting]
     Route: 065
     Dates: end: 20110815
  3. UNKNOWN ANTIDEPRESSANT [Interacting]
     Indication: DEPRESSION
     Route: 065
     Dates: end: 20110815
  4. HUMIRA [Suspect]
     Indication: PSORIASIS
     Route: 058
     Dates: start: 20101101, end: 20110401
  5. LEVOTHYROXINE SODIUM [Concomitant]
     Indication: HYPOTHYROIDISM
  6. AMBIEN [Interacting]
     Route: 065
  7. HUMIRA [Suspect]
     Route: 058
     Dates: start: 20110905

REACTIONS (7)
  - CONCUSSION [None]
  - DRUG INTERACTION [None]
  - INFLUENZA [None]
  - BLOOD GLUCOSE DECREASED [None]
  - COMA [None]
  - PAIN [None]
  - LOSS OF CONSCIOUSNESS [None]
